FAERS Safety Report 7663853-X (Version None)
Quarter: 2011Q3

REPORT INFORMATION
  Report Type: 
  Country: None (occurrence: None)
  Receive Date: 20110805
  Receipt Date: 20100804
  Transmission Date: 20111222
  Serious: No
  Sender: FDA-Public Use
  Company Number: US-ABBOTT-10P-163-0661775-00

PATIENT
  Sex: Female
  Weight: 97.61 kg

DRUGS (4)
  1. ASPIRIN [Concomitant]
     Indication: PRODUCT USED FOR UNKNOWN INDICATION
     Dosage: AT BEDTIME
  2. ASPIRIN [Concomitant]
     Dosage: AT BEDTIME
  3. MULTI-VITAMIN [Concomitant]
     Indication: PRODUCT USED FOR UNKNOWN INDICATION
  4. NIASPAN [Suspect]
     Indication: HIGH DENSITY LIPOPROTEIN DECREASED
     Dosage: AT BEDTIME OR WITH DINNER
     Dates: start: 20100701

REACTIONS (6)
  - SKIN BURNING SENSATION [None]
  - HYPOAESTHESIA [None]
  - FLUSHING [None]
  - DYSPNOEA [None]
  - CHILLS [None]
  - PARAESTHESIA [None]
